FAERS Safety Report 5030459-0 (Version None)
Quarter: 2006Q2

REPORT INFORMATION
  Report Type: 
  Country: None (occurrence: None)
  Receive Date: 20060614
  Receipt Date: 20060523
  Transmission Date: 20061013
  Serious: Yes (Death)
  Sender: FDA-Public Use
  Company Number: 225598

PATIENT
  Age: 43 Year
  Sex: Female
  Weight: 67 kg

DRUGS (6)
  1. HERCEPTIN [Suspect]
     Indication: SKIN CANCER
     Dosage: SEE IMAGE
     Route: 042
     Dates: end: 20060509
  2. HERCEPTIN [Suspect]
     Indication: SKIN CANCER
     Dosage: SEE IMAGE
     Route: 042
     Dates: start: 20060306
  3. XELODA [Suspect]
     Indication: SKIN CANCER
     Dosage: 1000 MG/M2, BID, INTRAVENOUS
     Route: 042
     Dates: start: 20060306, end: 20060424
  4. NAVELBINE [Concomitant]
  5. CHEMOTHERAPY (ANTINEOPLASTIC AGENT NOS) [Concomitant]
  6. NACL 0.9 (SODIUM CHLORIDE) [Concomitant]

REACTIONS (5)
  - ABSCESS JAW [None]
  - ANAPHYLACTIC SHOCK [None]
  - ERYTHEMA [None]
  - PALMAR-PLANTAR ERYTHRODYSAESTHESIA SYNDROME [None]
  - PULMONARY OEDEMA [None]
